FAERS Safety Report 22206114 (Version 3)
Quarter: 2023Q4

REPORT INFORMATION
  Report Type: Spontaneous
  Country: KR (occurrence: KR)
  Receive Date: 20230413
  Receipt Date: 20231109
  Transmission Date: 20240110
  Serious: Yes (Other)
  Sender: FDA-Public Use
  Company Number: KR-002147023-NVSC2023KR082032

PATIENT
  Age: 56 Year
  Sex: Female

DRUGS (6)
  1. LUTATHERA [Suspect]
     Active Substance: LUTETIUM OXODOTREOTIDE LU-177
     Indication: Pancreatic neuroendocrine tumour
     Dosage: 150 MCI (75 PERCENT ADMINISTRATION)
     Route: 065
  2. LUTATHERA [Suspect]
     Active Substance: LUTETIUM OXODOTREOTIDE LU-177
     Dosage: 160 MCI (2ND CYCLE) (80 PERCENT ADMINISTRATION)
     Route: 065
     Dates: start: 20230209
  3. ARGININE\LYSINE [Suspect]
     Active Substance: ARGININE\LYSINE
     Indication: Pancreatic neuroendocrine tumour
     Dosage: 250 ML (25 PERCENT ADMINISTRATION)
     Route: 065
  4. ARGININE\LYSINE [Suspect]
     Active Substance: ARGININE\LYSINE
     Dosage: 400 ML (40 PERCENT ADMINISTRATION)
     Route: 065
     Dates: start: 20230209
  5. AMINO ACIDS, SOURCE UNSPECIFIED [Concomitant]
     Active Substance: AMINO ACIDS, SOURCE UNSPECIFIED
     Indication: Product used for unknown indication
     Dosage: UNK
     Route: 065
  6. SODIUM BICARBONATE [Concomitant]
     Active Substance: SODIUM BICARBONATE
     Indication: Product used for unknown indication
     Dosage: UNK
     Route: 065

REACTIONS (5)
  - Respiratory failure [Unknown]
  - Pancytopenia [Recovering/Resolving]
  - Tachypnoea [Unknown]
  - Diarrhoea [Recovering/Resolving]
  - Metabolic acidosis [Unknown]
